FAERS Safety Report 6768608-6 (Version None)
Quarter: 2010Q2

REPORT INFORMATION
  Report Type: 
  Country: None (occurrence: None)
  Receive Date: 20100614
  Receipt Date: 20100604
  Transmission Date: 20101027
  Serious: Yes (Hospitalization)
  Sender: FDA-Public Use
  Company Number: US-CELGENEUS-163-21880-10042188

PATIENT
  Sex: Male

DRUGS (6)
  1. REVLIMID [Suspect]
     Route: 048
     Dates: start: 20100101, end: 20100301
  2. REVLIMID [Suspect]
     Route: 048
     Dates: start: 20081024
  3. ALLOPURINOL [Concomitant]
     Indication: GOUT
     Route: 048
  4. PRILOSEC [Concomitant]
     Route: 048
  5. FOSAMAX [Concomitant]
     Indication: OSTEOPOROSIS
     Route: 065
  6. CALCIUM-VITD [Concomitant]
     Indication: DRUG USE FOR UNKNOWN INDICATION
     Dosage: 600/100
     Route: 065

REACTIONS (2)
  - BLOOD COUNT ABNORMAL [None]
  - SMALL INTESTINAL OBSTRUCTION [None]
